FAERS Safety Report 14542568 (Version 1)
Quarter: 2018Q1

REPORT INFORMATION
  Report Type: Spontaneous
  Country: US (occurrence: US)
  Receive Date: 20180216
  Receipt Date: 20180216
  Transmission Date: 20180509
  Serious: Yes (Hospitalization, Other)
  Sender: FDA-Public Use
  Company Number: US-OTSUKA-DJ201406504

PATIENT
  Sex: Male
  Weight: 90.7 kg

DRUGS (4)
  1. ABILIFY [Suspect]
     Active Substance: ARIPIPRAZOLE
     Indication: DEPRESSION
     Dosage: 10 MG, UNK
     Route: 065
     Dates: start: 2007
  2. CLONAZEPAM. [Concomitant]
     Active Substance: CLONAZEPAM
     Indication: PRODUCT USED FOR UNKNOWN INDICATION
     Dosage: UNK
     Route: 065
  3. ZEGERID [Concomitant]
     Active Substance: OMEPRAZOLE\SODIUM BICARBONATE
     Indication: PRODUCT USED FOR UNKNOWN INDICATION
     Dosage: UNK
     Route: 065
  4. ZOLOFT [Concomitant]
     Active Substance: SERTRALINE HYDROCHLORIDE
     Indication: PRODUCT USED FOR UNKNOWN INDICATION
     Dosage: UNK
     Route: 065

REACTIONS (10)
  - Neuropathy peripheral [Not Recovered/Not Resolved]
  - Hepatic steatosis [Recovered/Resolved]
  - Blood cholesterol increased [Unknown]
  - Weight increased [Recovered/Resolved]
  - Ligament rupture [Unknown]
  - Type 2 diabetes mellitus [Not Recovered/Not Resolved]
  - Hypertension [Unknown]
  - Ammonia increased [Recovered/Resolved]
  - Weight decreased [Recovered/Resolved]
  - Pain in extremity [Not Recovered/Not Resolved]

NARRATIVE: CASE EVENT DATE: 2008
